FAERS Safety Report 14536528 (Version 1)
Quarter: 2018Q1

REPORT INFORMATION
  Report Type: Spontaneous
  Country: US (occurrence: US)
  Receive Date: 20180215
  Receipt Date: 20180215
  Transmission Date: 20180509
  Serious: Yes (Hospitalization)
  Sender: FDA-Public Use
  Company Number: None

PATIENT
  Age: 87 Year
  Sex: Female
  Weight: 72.2 kg

DRUGS (11)
  1. HUMALOG [Concomitant]
     Active Substance: INSULIN LISPRO
  2. METFORMIN [Concomitant]
     Active Substance: METFORMIN HYDROCHLORIDE
  3. MAG OX [Concomitant]
     Active Substance: MAGNESIUM OXIDE
  4. TIKOSYN [Suspect]
     Active Substance: DOFETILIDE
     Indication: ATRIAL FIBRILLATION
     Route: 048
  5. ALBUTEROL. [Concomitant]
     Active Substance: ALBUTEROL
  6. ELIQUIS [Concomitant]
     Active Substance: APIXABAN
  7. FML [Concomitant]
     Active Substance: FLUOROMETHOLONE
  8. NORVASC [Concomitant]
     Active Substance: AMLODIPINE BESYLATE
  9. LASIX [Concomitant]
     Active Substance: FUROSEMIDE
  10. COZAAR [Concomitant]
     Active Substance: LOSARTAN POTASSIUM
  11. THERATE [Concomitant]

REACTIONS (3)
  - Hypomagnesaemia [None]
  - Syncope [None]
  - Torsade de pointes [None]

NARRATIVE: CASE EVENT DATE: 20170717
